FAERS Safety Report 4432109-0 (Version None)
Quarter: 2004Q3

REPORT INFORMATION
  Report Type: 
  Country: None (occurrence: None)
  Receive Date: 20040825
  Receipt Date: 20040818
  Transmission Date: 20050211
  Serious: Yes (Other)
  Sender: FDA-Public Use
  Company Number: PHBS2004IL10929

PATIENT
  Age: 58 Year
  Sex: Female

DRUGS (6)
  1. ZELMAC [Suspect]
     Indication: IRRITABLE BOWEL SYNDROME
     Dosage: 6 MG, BID
     Route: 048
     Dates: start: 20040101
  2. NORMITEN [Concomitant]
  3. SIMOVIL [Concomitant]
  4. FOSALAN [Concomitant]
  5. STUNARONE [Concomitant]
  6. CALCIUM [Concomitant]

REACTIONS (6)
  - ABDOMINAL PAIN [None]
  - NIPPLE PAIN [None]
  - POLYCYSTIC OVARIES [None]
  - RED BLOOD CELLS URINE [None]
  - UTERINE LEIOMYOMA [None]
  - VAGINAL HAEMORRHAGE [None]
